FAERS Safety Report 10232928 (Version 2)
Quarter: 2014Q2

REPORT INFORMATION
  Report Type: Spontaneous
  Country: US (occurrence: US)
  Receive Date: 20140612
  Receipt Date: 20140624
  Transmission Date: 20141212
  Serious: Yes (Other)
  Sender: FDA-Public Use
  Company Number: US-PURDUE-USA-2014-0114748

PATIENT
  Sex: Female

DRUGS (3)
  1. OXYCONTIN (NDA 22-272) [Suspect]
     Indication: BACK PAIN
     Dosage: 10 MG, BID
     Route: 048
     Dates: start: 2013, end: 2013
  2. OXYCONTIN (NDA 22-272) [Suspect]
     Dosage: 40 MG, BID
  3. OXYCONTIN (NDA 22-272) [Suspect]
     Dosage: UNK
     Route: 048
     Dates: start: 2008

REACTIONS (4)
  - Suicidal ideation [Recovering/Resolving]
  - Pain [Recovered/Resolved]
  - Drug ineffective [Recovered/Resolved]
  - Unevaluable event [Recovering/Resolving]
